FAERS Safety Report 6601961-2 (Version None)
Quarter: 2010Q1

REPORT INFORMATION
  Report Type: 
  Country: None (occurrence: None)
  Receive Date: 20100225
  Receipt Date: 20100216
  Transmission Date: 20100710
  Serious: Yes (Other)
  Sender: FDA-Public Use
  Company Number: US-MERCK-0902USA03057

PATIENT
  Age: 63 Year
  Sex: Female
  Weight: 66 kg

DRUGS (1)
  1. FOSAMAX [Suspect]
     Indication: OSTEOPOROSIS
     Route: 048
     Dates: start: 20040721, end: 20070201

REACTIONS (13)
  - BONE DENSITY DECREASED [None]
  - BONE DISORDER [None]
  - EXOSTOSIS [None]
  - FRACTURE [None]
  - GAIT DISTURBANCE [None]
  - HIP FRACTURE [None]
  - JOINT RANGE OF MOTION DECREASED [None]
  - LACRIMATION INCREASED [None]
  - ORAL CANDIDIASIS [None]
  - ORAL DISORDER [None]
  - ORAL INFECTION [None]
  - OSTEONECROSIS [None]
  - PAIN IN JAW [None]
